FAERS Safety Report 22908758 (Version 2)
Quarter: 2024Q1

REPORT INFORMATION
  Report Type: Spontaneous
  Country: US (occurrence: US)
  Receive Date: 20230905
  Receipt Date: 20240321
  Transmission Date: 20240410
  Serious: No
  Sender: FDA-Public Use
  Company Number: US-SA-SAC20230831001285

PATIENT
  Age: 49 Year
  Sex: Female

DRUGS (4)
  1. DUPIXENT [Suspect]
     Active Substance: DUPILUMAB
     Indication: Dermatitis
     Dosage: 300 MG, QOW
     Route: 058
     Dates: start: 20220810
  2. ATORVASTATIN [Concomitant]
     Active Substance: ATORVASTATIN
     Dosage: UNK
  3. ENTRESTO [Concomitant]
     Active Substance: SACUBITRIL\VALSARTAN
  4. METOPROLOL [Concomitant]
     Active Substance: METOPROLOL

REACTIONS (5)
  - Sleep disorder [Unknown]
  - Dermatitis [Unknown]
  - Injection site reaction [Unknown]
  - Drug ineffective [Unknown]
  - Product use in unapproved indication [Unknown]

NARRATIVE: CASE EVENT DATE: 20220810
